FAERS Safety Report 16163103 (Version 1)
Quarter: 2019Q2

REPORT INFORMATION
  Report Type: Spontaneous
  Country: US (occurrence: US)
  Receive Date: 20190405
  Receipt Date: 20190405
  Transmission Date: 20190711
  Serious: No
  Sender: FDA-Public Use
  Company Number: US-ELI_LILLY_AND_COMPANY-US201904003131

PATIENT
  Sex: Female

DRUGS (2)
  1. ADMELOG SOLOSTAR [Concomitant]
     Indication: TYPE 1 DIABETES MELLITUS
     Dosage: UNK UNK, PRN
  2. BASAGLAR [Suspect]
     Active Substance: INSULIN GLARGINE
     Indication: TYPE 1 DIABETES MELLITUS
     Dosage: 40 IU, EACH MORNING
     Route: 065
     Dates: start: 201810

REACTIONS (1)
  - Glycosylated haemoglobin increased [Not Recovered/Not Resolved]
